FAERS Safety Report 6036733-3 (Version None)
Quarter: 2009Q1

REPORT INFORMATION
  Report Type: 
  Country: None (occurrence: None)
  Receive Date: 20090114
  Receipt Date: 20090105
  Transmission Date: 20090719
  Serious: Yes (Hospitalization, Other)
  Sender: FDA-Public Use
  Company Number: IE-PFIZER INC-2008080036

PATIENT

DRUGS (9)
  1. LIPITOR [Suspect]
     Indication: BLOOD CHOLESTEROL
     Route: 048
     Dates: start: 20050101, end: 20080915
  2. LIPITOR [Suspect]
     Indication: DIABETES MELLITUS
  3. ERYTHROMYCIN [Suspect]
     Indication: OSTEOMYELITIS
     Dosage: BID; EVERYDAY
     Route: 048
     Dates: start: 20080805, end: 20080915
  4. FUSIDIC ACID [Suspect]
     Indication: OSTEOMYELITIS
     Dosage: TID; EVERYDAY
     Route: 048
     Dates: start: 20080805, end: 20080915
  5. METFORMIN [Concomitant]
  6. RAMIPRIL [Concomitant]
  7. ASPIRIN [Concomitant]
  8. DIAMICRON [Concomitant]
  9. AZITHROMYCIN [Concomitant]
     Route: 042
     Dates: start: 20080805

REACTIONS (3)
  - MYOPATHY [None]
  - OSTEOMYELITIS [None]
  - RHABDOMYOLYSIS [None]
